FAERS Safety Report 9503495 (Version 1)
Quarter: 2013Q3

REPORT INFORMATION
  Report Type: Spontaneous
  Country: IT (occurrence: IT)
  Receive Date: 20130906
  Receipt Date: 20130906
  Transmission Date: 20140515
  Serious: Yes (Hospitalization)
  Sender: FDA-Public Use
  Company Number: IT-PFIZER INC-2013256789

PATIENT
  Age: 89 Year
  Sex: Female

DRUGS (5)
  1. TRIATEC [Suspect]
     Indication: HYPERTENSION
     Dosage: 10 MG, 1X/DAY
     Route: 048
     Dates: start: 20130101, end: 20130812
  2. TACHIPIRINA [Concomitant]
     Dosage: UNK
  3. CONTRAMAL [Concomitant]
     Dosage: UNK
  4. PEPTAZOL [Concomitant]
     Dosage: UNK
  5. APIDRA [Concomitant]
     Dosage: UNK

REACTIONS (4)
  - Loss of consciousness [Unknown]
  - Orthostatic hypotension [Unknown]
  - Asthenia [Unknown]
  - Renal failure chronic [Unknown]
